FAERS Safety Report 24444959 (Version 2)
Quarter: 2025Q1

REPORT INFORMATION
  Report Type: Report from Study
  Country: US (occurrence: US)
  Receive Date: 20241016
  Receipt Date: 20250120
  Transmission Date: 20250409
  Serious: No
  Sender: AGIOS PHARMACEUTICALS
  Company Number: US-AGIOS-2410US03912

PATIENT
  Sex: Female

DRUGS (1)
  1. MITAPIVAT [Suspect]
     Active Substance: MITAPIVAT
     Indication: Pyruvate kinase deficiency anaemia
     Route: 065
     Dates: start: 20240625

REACTIONS (6)
  - Product dose omission in error [Unknown]
  - Brain fog [Unknown]
  - Confusional state [Unknown]
  - Impaired work ability [Unknown]
  - Blood folate increased [Unknown]
  - Emotional disorder [Unknown]
